FAERS Safety Report 7943872-6 (Version None)
Quarter: 2011Q4

REPORT INFORMATION
  Report Type: 
  Country: None (occurrence: None)
  Receive Date: 20111128
  Receipt Date: 20111118
  Transmission Date: 20120403
  Serious: Yes (Other)
  Sender: FDA-Public Use
  Company Number: US-ASTRAZENECA-2010SE17479

PATIENT
  Age: 82 Year
  Sex: Female

DRUGS (3)
  1. PRILOSEC [Suspect]
     Route: 048
  2. PULMICORT [Suspect]
     Route: 055
  3. NEXIUM [Suspect]
     Route: 048

REACTIONS (10)
  - DYSPEPSIA [None]
  - VOMITING [None]
  - DRUG DOSE OMISSION [None]
  - DYSPNOEA [None]
  - HAEMOPTYSIS [None]
  - APHAGIA [None]
  - DRUG HYPERSENSITIVITY [None]
  - CHRONIC OBSTRUCTIVE PULMONARY DISEASE [None]
  - BEDRIDDEN [None]
  - PULMONARY CONGESTION [None]
